FAERS Safety Report 16272326 (Version 2)
Quarter: 2019Q2

REPORT INFORMATION
  Report Type: Other
  Country: US (occurrence: US)
  Receive Date: 20190503
  Receipt Date: 20190606
  Transmission Date: 20190711
  Serious: Yes (Life-Threatening, Hospitalization, Other)
  Sender: FDA-Public Use
  Company Number: US-LA JOLLA PHARMACEUTICAL COMPANY-0000270

PATIENT
  Age: 60 Year
  Sex: Female
  Weight: 92 kg

DRUGS (4)
  1. NOREPINEPHRINE. [Concomitant]
     Active Substance: NOREPINEPHRINE
     Dosage: 30 MCG/MIN, UNK
     Route: 042
     Dates: start: 20180708, end: 20180715
  2. GIAPREZA [Suspect]
     Active Substance: ANGIOTENSIN II
     Indication: SEPSIS
     Dosage: 50 NG/KG/MIN, UNK
     Route: 041
     Dates: start: 20180709, end: 20180710
  3. EPINEPHRINE. [Concomitant]
     Active Substance: EPINEPHRINE
     Dosage: 15 MCG/MIN, UNK
     Route: 042
     Dates: start: 20180708, end: 20180712
  4. PHENYLEPHRINE [Concomitant]
     Active Substance: PHENYLEPHRINE\PHENYLEPHRINE HYDROCHLORIDE
     Dosage: 200-300 MCG/MIN, UNK
     Route: 042
     Dates: start: 20180708, end: 20180710

REACTIONS (8)
  - Disseminated intravascular coagulation [Recovering/Resolving]
  - Dry gangrene [Recovering/Resolving]
  - Ejection fraction decreased [Unknown]
  - Haematuria [Recovering/Resolving]
  - Portal vein thrombosis [Recovering/Resolving]
  - Myopathy [Unknown]
  - Platelet count decreased [Recovered/Resolved]
  - Peripheral ischaemia [Recovering/Resolving]

NARRATIVE: CASE EVENT DATE: 20180709
